FAERS Safety Report 7315900-2 (Version None)
Quarter: 2011Q1

REPORT INFORMATION
  Report Type: 
  Country: None (occurrence: None)
  Receive Date: 20110217
  Receipt Date: 20110217
  Transmission Date: 20110831
  Serious: Yes (Hospitalization)
  Sender: FDA-Public Use
  Company Number: None

PATIENT
  Age: 63 Year
  Sex: Male
  Weight: 84.9 kg

DRUGS (1)
  1. ACETAMINOPHEN W/ CODEINE [Suspect]
     Dosage: 1 TAB MG BID PO
     Route: 048
     Dates: start: 20100808, end: 20110209

REACTIONS (4)
  - OVERDOSE [None]
  - TOXICITY TO VARIOUS AGENTS [None]
  - NAUSEA [None]
  - VOMITING [None]
